FAERS Safety Report 6976324-0 (Version None)
Quarter: 2010Q3

REPORT INFORMATION
  Report Type: 
  Country: None (occurrence: None)
  Receive Date: 20100910
  Receipt Date: 20100831
  Transmission Date: 20110219
  Serious: Yes (Other)
  Sender: FDA-Public Use
  Company Number: US-PFIZER INC-2010110217

PATIENT
  Sex: Female
  Weight: 95.238 kg

DRUGS (12)
  1. TOVIAZ [Suspect]
     Indication: HYPERTONIC BLADDER
     Dosage: UNK, DAILY
     Route: 048
     Dates: start: 20100701
  2. POTASSIUM [Concomitant]
     Dosage: UNK
  3. ACETYLSALICYLIC ACID [Concomitant]
     Dosage: UNK
  4. FOLIC ACID [Concomitant]
     Dosage: UNK
  5. KLONOPIN [Concomitant]
     Dosage: UNK
  6. METFORMIN HYDROCHLORIDE/SITAGLIPTIN [Concomitant]
     Dosage: UNK
  7. TUMS [Concomitant]
     Dosage: UNK
  8. PHENTERMINE [Concomitant]
     Dosage: UNK
  9. ASCORBIC ACID [Concomitant]
     Dosage: UNK
  10. VITAMIN D [Concomitant]
     Dosage: UNK
  11. OMEPRAZOLE [Concomitant]
     Indication: GASTROOESOPHAGEAL REFLUX DISEASE
     Dosage: UNK
  12. ATENOLOL [Concomitant]
     Indication: HYPERTENSION
     Dosage: UNK

REACTIONS (7)
  - ABDOMINAL DISTENSION [None]
  - CHOKING [None]
  - DRY MOUTH [None]
  - DYSURIA [None]
  - POLLAKIURIA [None]
  - URTICARIA [None]
  - VISUAL IMPAIRMENT [None]
